FAERS Safety Report 11155372 (Version 1)
Quarter: 2015Q2

REPORT INFORMATION
  Report Type: Spontaneous
  Country: JP (occurrence: None)
  Receive Date: 20150529
  Receipt Date: 20150529
  Transmission Date: 20150821
  Serious: Yes (Hospitalization, Other)
  Sender: FDA-Public Use
  Company Number: JP-ZYDUS-008174

PATIENT
  Age: 83 Year
  Sex: Male

DRUGS (5)
  1. CLOPIDOGREL [Suspect]
     Active Substance: CLOPIDOGREL BISULFATE
  2. PROPRANOLOL [Suspect]
     Active Substance: PROPRANOLOL\PROPRANOLOL HYDROCHLORIDE
  3. NICORANDIL (NICORANDIL) [Suspect]
     Active Substance: NICORANDIL
  4. ROSUVASTATIN (ROSUVASTATIN) [Suspect]
     Active Substance: ROSUVASTATIN
  5. VALSARTAN (VALSARTAN) [Suspect]
     Active Substance: VALSARTAN

REACTIONS (4)
  - Drug hypersensitivity [None]
  - Eosinophilia [None]
  - Erythema [None]
  - Coronary artery restenosis [None]

NARRATIVE: CASE EVENT DATE: 201308
